FAERS Safety Report 8396386-6 (Version None)
Quarter: 2012Q2

REPORT INFORMATION
  Report Type: 
  Country: None (occurrence: None)
  Receive Date: 20120530
  Receipt Date: 20120521
  Transmission Date: 20120825
  Serious: Yes (Hospitalization)
  Sender: FDA-Public Use
  Company Number: JP-MERCK-1204USA02305

PATIENT
  Age: 68 Year
  Sex: Female
  Weight: 47 kg

DRUGS (19)
  1. LIVALO [Concomitant]
     Indication: HYPERCHOLESTEROLAEMIA
     Route: 048
     Dates: start: 20100617
  2. ONON [Concomitant]
     Indication: ASTHMA
     Route: 048
     Dates: start: 19970101
  3. PREDNISOLONE [Concomitant]
     Indication: ASTHMA
     Route: 048
     Dates: start: 19970101
  4. CONIEL [Concomitant]
     Indication: ANGINA PECTORIS
     Route: 048
     Dates: start: 20111107
  5. AMARYL [Suspect]
     Indication: HYPERGLYCAEMIA
     Route: 048
     Dates: start: 20100108, end: 20120325
  6. AMARYL [Suspect]
     Route: 048
     Dates: start: 20120329
  7. METHYCOOL [Concomitant]
     Indication: DIABETIC NEUROPATHY
     Route: 048
     Dates: start: 20101106
  8. JANUVIA [Suspect]
     Route: 048
     Dates: start: 20120327
  9. AMARYL [Suspect]
     Route: 048
     Dates: start: 20120329
  10. JANUVIA [Suspect]
     Indication: DIABETES MELLITUS
     Route: 048
     Dates: start: 20120302, end: 20120325
  11. JANUVIA [Suspect]
     Indication: HYPERGLYCAEMIA
     Route: 048
     Dates: start: 20120302, end: 20120325
  12. AMARYL [Suspect]
     Indication: DIABETES MELLITUS
     Route: 048
     Dates: start: 20100108, end: 20120325
  13. CAMOSTATE [Concomitant]
     Indication: PANCREATITIS CHRONIC
     Route: 048
     Dates: start: 20090804
  14. LIVALO [Concomitant]
     Indication: DYSLIPIDAEMIA
     Route: 048
     Dates: start: 20100617
  15. LASIX [Concomitant]
     Indication: HYPERTENSION
     Route: 048
     Dates: start: 20111219
  16. MUCOSOLVAN [Concomitant]
     Indication: ASTHMA
     Route: 048
     Dates: start: 20000101
  17. FAMOTIDINE [Concomitant]
     Indication: GASTRIC ULCER
     Route: 048
     Dates: start: 19970101
  18. JANUVIA [Suspect]
     Route: 048
     Dates: start: 20120327
  19. CLARITHROMYCIN [Concomitant]
     Indication: ASTHMA
     Route: 048
     Dates: start: 20090307

REACTIONS (1)
  - HYPOGLYCAEMIC COMA [None]
